FAERS Safety Report 13587734 (Version 3)
Quarter: 2017Q3

REPORT INFORMATION
  Report Type: Report from Study
  Country: US (occurrence: US)
  Receive Date: 20170526
  Receipt Date: 20170718
  Transmission Date: 20171127
  Serious: Yes (Hospitalization, Other)
  Sender: FDA-Public Use
  Company Number: US-JAZZ-2017-US-002931

PATIENT
  Age: 56 Year
  Sex: Female

DRUGS (32)
  1. DEPAKOTE [Concomitant]
     Active Substance: DIVALPROEX SODIUM
  2. OMEPRAZOLE. [Concomitant]
     Active Substance: OMEPRAZOLE
  3. REXULTI [Concomitant]
     Active Substance: BREXPIPRAZOLE
  4. ZOLOFT [Concomitant]
     Active Substance: SERTRALINE HYDROCHLORIDE
  5. LOTREL                             /01388302/ [Concomitant]
     Active Substance: LOTEPREDNOL ETABONATE
  6. XYREM [Suspect]
     Active Substance: SODIUM OXYBATE
     Indication: SOMNOLENCE
     Dosage: 2.25 G, BID
     Route: 048
     Dates: start: 200705, end: 200706
  7. ADDERALL [Concomitant]
     Active Substance: AMPHETAMINE ASPARTATE\AMPHETAMINE SULFATE\DEXTROAMPHETAMINE SACCHARATE\DEXTROAMPHETAMINE SULFATE
  8. IPRATROPIUM [Concomitant]
     Active Substance: IPRATROPIUM
  9. PIROXICAM. [Concomitant]
     Active Substance: PIROXICAM
  10. VITAMIN D3 [Concomitant]
     Active Substance: CHOLECALCIFEROL
  11. METOPROLOL TARTRATE. [Concomitant]
     Active Substance: METOPROLOL TARTRATE
  12. CLORAZEPATE [Concomitant]
     Active Substance: CLORAZEPATE DIPOTASSIUM
  13. RESTASIS [Concomitant]
     Active Substance: CYCLOSPORINE
  14. CLONAZEPAM. [Concomitant]
     Active Substance: CLONAZEPAM
  15. ACIPHEX [Concomitant]
     Active Substance: RABEPRAZOLE SODIUM
  16. LAMICTAL [Concomitant]
     Active Substance: LAMOTRIGINE
  17. PROMETRIUM [Concomitant]
     Active Substance: PROGESTERONE
  18. GABAPENTIN. [Concomitant]
     Active Substance: GABAPENTIN
  19. LOSARTAN POTASSIUM. [Concomitant]
     Active Substance: LOSARTAN POTASSIUM
  20. REQUIP [Concomitant]
     Active Substance: ROPINIROLE HYDROCHLORIDE
  21. TOPAMAX [Concomitant]
     Active Substance: TOPIRAMATE
  22. TOPROL XL [Concomitant]
     Active Substance: METOPROLOL SUCCINATE
  23. XYREM [Suspect]
     Active Substance: SODIUM OXYBATE
     Dosage: 3 G, BID
     Route: 048
     Dates: start: 201610
  24. EDLUAR [Concomitant]
     Active Substance: ZOLPIDEM TARTRATE
  25. LORAZEPAM. [Concomitant]
     Active Substance: LORAZEPAM
  26. ALPRAZOLAM. [Concomitant]
     Active Substance: ALPRAZOLAM
  27. XYREM [Suspect]
     Active Substance: SODIUM OXYBATE
     Indication: NARCOLEPSY
     Dosage: DOSE ADJUSTMENT
     Route: 048
     Dates: start: 200706, end: 201406
  28. CYMBALTA [Concomitant]
     Active Substance: DULOXETINE HYDROCHLORIDE
  29. PROVIGIL [Concomitant]
     Active Substance: MODAFINIL
  30. FEMRING [Concomitant]
     Active Substance: ESTRADIOL ACETATE
  31. ABILIFY [Concomitant]
     Active Substance: ARIPIPRAZOLE
  32. SANCTURA [Concomitant]
     Active Substance: TROSPIUM CHLORIDE

REACTIONS (6)
  - Abdominal pain upper [Unknown]
  - Cholecystectomy [Unknown]
  - Clostridium difficile infection [Unknown]
  - Post procedural complication [Unknown]
  - Eating disorder [Unknown]
  - Restless legs syndrome [Not Recovered/Not Resolved]

NARRATIVE: CASE EVENT DATE: 201705
